FAERS Safety Report 11826223 (Version 5)
Quarter: 2015Q4

REPORT INFORMATION
  Report Type: Spontaneous
  Country: FI (occurrence: FI)
  Receive Date: 20151211
  Receipt Date: 20151222
  Transmission Date: 20160305
  Serious: Yes (Disabling)
  Sender: FDA-Public Use
  Company Number: PHHY2015FI159325

PATIENT
  Age: 58 Year
  Sex: Male
  Weight: 125 kg

DRUGS (5)
  1. SELECTOL [Concomitant]
     Active Substance: CELIPROLOL
     Indication: HYPERTENSION
     Dosage: 400 MG, QD
     Route: 048
     Dates: start: 2008
  2. PRIMASPAN [Concomitant]
     Active Substance: ASPIRIN
     Indication: PRODUCT USED FOR UNKNOWN INDICATION
     Dosage: 100 MG, QD
     Route: 065
  3. EXFORGE HCT [Interacting]
     Active Substance: AMLODIPINE BESYLATE\HYDROCHLOROTHIAZIDE\VALSARTAN
     Indication: HYPERTENSION
     Dosage: 1 DF, QD (320 MG VALS AND 10 MG AMLO AND 25 MG HYDR)
     Route: 048
     Dates: start: 201101
  4. ATORVASTATIN ORION [Suspect]
     Active Substance: ATORVASTATIN CALCIUM
     Indication: BLOOD CHOLESTEROL ABNORMAL
     Dosage: UNK
     Route: 065
     Dates: start: 20140203, end: 201404
  5. SIMVASTATIN ORION [Interacting]
     Active Substance: SIMVASTATIN
     Indication: BLOOD CHOLESTEROL ABNORMAL
     Dosage: 40 MG, QD
     Route: 048
     Dates: start: 20130327, end: 20131215

REACTIONS (34)
  - Mitochondrial cytopathy [Unknown]
  - Umbilical hernia [Unknown]
  - Dry eye [Unknown]
  - Blood pyruvic acid increased [Unknown]
  - Chest discomfort [Unknown]
  - Abdominal pain lower [Recovered/Resolved]
  - Facial paresis [Unknown]
  - Muscle hypertrophy [Unknown]
  - Visual impairment [Unknown]
  - Pain in extremity [Unknown]
  - Hepatic steatosis [Unknown]
  - Feeling cold [Unknown]
  - Speech disorder [Unknown]
  - Pain [Unknown]
  - Tremor [Unknown]
  - Diplopia [Unknown]
  - Drug interaction [Unknown]
  - Aldolase abnormal [Unknown]
  - Musculoskeletal stiffness [Unknown]
  - Bacterial infection [Recovered/Resolved]
  - Gingival hyperplasia [Unknown]
  - Foot deformity [Unknown]
  - Hypothyroidism [Unknown]
  - Vision blurred [Unknown]
  - Ocular hyperaemia [Unknown]
  - Muscle disorder [Not Recovered/Not Resolved]
  - Exostosis of external ear canal [Unknown]
  - Memory impairment [Unknown]
  - Blood creatinine increased [Unknown]
  - Fatigue [Unknown]
  - Muscle strain [Unknown]
  - Hypertension [Unknown]
  - Myalgia [Unknown]
  - Dizziness [Unknown]

NARRATIVE: CASE EVENT DATE: 2013
